FAERS Safety Report 24333420 (Version 1)
Quarter: 2024Q3

REPORT INFORMATION
  Report Type: Report from Study
  Country: US (occurrence: US)
  Receive Date: 20240918
  Receipt Date: 20240918
  Transmission Date: 20241016
  Serious: Yes (Hospitalization, Other)
  Sender: ASCENDIS PHARMA
  Company Number: US-ASCENDIS PHARMA-2023US003768

PATIENT

DRUGS (3)
  1. PALOPEGTERIPARATIDE [Suspect]
     Active Substance: PALOPEGTERIPARATIDE
     Indication: Hypoparathyroidism
     Dosage: 18 MICROGRAM, QD
     Route: 058
     Dates: start: 20231108, end: 20231110
  2. KEPPRA [Concomitant]
     Active Substance: LEVETIRACETAM
     Indication: Product used for unknown indication
     Dosage: UNK
     Dates: start: 20230624
  3. FORTEO [Concomitant]
     Active Substance: TERIPARATIDE
     Indication: Hypoparathyroidism
     Dosage: UNK
     Dates: start: 20211102, end: 20231107

REACTIONS (1)
  - Anaphylactic reaction [Recovered/Resolved]

NARRATIVE: CASE EVENT DATE: 20231109
